FAERS Safety Report 13620788 (Version 2)
Quarter: 2017Q2

REPORT INFORMATION
  Report Type: Report from Study
  Country: CA (occurrence: CA)
  Receive Date: 20170607
  Receipt Date: 20170607
  Transmission Date: 20170830
  Serious: Yes (Other)
  Sender: FDA-Public Use
  Company Number: PHHY2017CA017108

PATIENT
  Age: 40 Year
  Sex: Female

DRUGS (2)
  1. JADENU [Suspect]
     Active Substance: DEFERASIROX
     Indication: IRON OVERLOAD
     Dosage: 1080 MG, QD
     Route: 048
     Dates: start: 20160716, end: 201612
  2. JADENU [Suspect]
     Active Substance: DEFERASIROX
     Dosage: 1080 MG, QD (RIGHT AFTER DINNER)
     Route: 048
     Dates: start: 20170301

REACTIONS (2)
  - Abortion spontaneous [Unknown]
  - Maternal exposure during pregnancy [Unknown]

NARRATIVE: CASE EVENT DATE: 201702
